FAERS Safety Report 24711157 (Version 1)
Quarter: 2024Q4

REPORT INFORMATION
  Report Type: Spontaneous
  Country: US (occurrence: None)
  Receive Date: 20241206
  Receipt Date: 20241206
  Transmission Date: 20250115
  Serious: Yes (Death)
  Sender: Public
  Company Number: None

PATIENT
  Age: 85 Year
  Sex: Female

DRUGS (11)
  1. MYCOPHENOLIC ACID [Suspect]
     Active Substance: MYCOPHENOLIC ACID
     Indication: Renal transplant
     Dosage: 360 MG BID ORAL
     Route: 048
     Dates: start: 20190101, end: 20241129
  2. acetaminophen/ codeine 300/30mg [Concomitant]
  3. AMLODIPINE [Concomitant]
     Active Substance: AMLODIPINE BESYLATE
  4. calcitriol 0.5mcg [Concomitant]
  5. CEPHALEXIN [Concomitant]
     Active Substance: CEPHALEXIN
  6. COLCHICINE [Concomitant]
     Active Substance: COLCHICINE
  7. docusate 100 mg [Concomitant]
  8. DONEPEZIL [Concomitant]
     Active Substance: DONEPEZIL
  9. ELIQUIS [Concomitant]
     Active Substance: APIXABAN
  10. FUROSEMIDE [Concomitant]
     Active Substance: FUROSEMIDE
  11. GABAPENTIN [Concomitant]
     Active Substance: GABAPENTIN

REACTIONS (1)
  - Death [None]

NARRATIVE: CASE EVENT DATE: 20241129
